FAERS Safety Report 9023174 (Version 1)
Quarter: 2013Q1

REPORT INFORMATION
  Report Type: Spontaneous
  Country: US (occurrence: US)
  Receive Date: 20130120
  Receipt Date: 20130120
  Transmission Date: 20140127
  Serious: No
  Sender: FDA-Public Use
  Company Number: US-ALLERGAN-1214704US

PATIENT
  Sex: Female

DRUGS (1)
  1. BOTOX? [Suspect]
     Indication: MUSCLE SPASTICITY
     Dosage: 600 UNITS, SINGLE

REACTIONS (2)
  - Hemiparesis [Unknown]
  - Dysarthria [Unknown]
